FAERS Safety Report 6377868-5 (Version None)
Quarter: 2009Q3

REPORT INFORMATION
  Report Type: 
  Country: None (occurrence: None)
  Receive Date: 20090921
  Receipt Date: 20090915
  Transmission Date: 20100115
  Serious: Yes (Hospitalization)
  Sender: FDA-Public Use
  Company Number: SP01030

PATIENT
  Age: 66 Year
  Sex: Female

DRUGS (7)
  1. OSMOPREP [Suspect]
     Indication: COLONOSCOPY
     Dosage: 28 TABLETS IN ONE DAY, ORAL
     Route: 048
     Dates: start: 20061107, end: 20061107
  2. ZESTRIL [Concomitant]
  3. ISORBIDE [Concomitant]
  4. LASIX [Concomitant]
  5. FOSAMAX [Concomitant]
  6. ASPIRIN [Concomitant]
  7. KLOR-CON [Concomitant]

REACTIONS (6)
  - ASTHENIA [None]
  - CHEST PAIN [None]
  - DIZZINESS [None]
  - HYPOTENSION [None]
  - PLEURAL EFFUSION [None]
  - RENAL FAILURE ACUTE [None]
